FAERS Safety Report 21927373 (Version 4)
Quarter: 2023Q1

REPORT INFORMATION
  Report Type: Report from Study
  Country: CA (occurrence: CA)
  Receive Date: 20230130
  Receipt Date: 20230301
  Transmission Date: 20230417
  Serious: Yes (Other)
  Sender: FDA-Public Use
  Company Number: CA-ABBVIE-22K-028-4383525-00

PATIENT
  Age: 40 Year
  Sex: Female

DRUGS (3)
  1. RINVOQ [Suspect]
     Active Substance: UPADACITINIB
     Indication: Dermatitis atopic
     Route: 048
     Dates: start: 20220202
  2. RINVOQ [Suspect]
     Active Substance: UPADACITINIB
     Indication: Dermatitis atopic
     Route: 048
  3. ELIQUIS [Concomitant]
     Active Substance: APIXABAN
     Indication: Product used for unknown indication
     Route: 065

REACTIONS (12)
  - Atrial fibrillation [Recovered/Resolved]
  - Alopecia [Not Recovered/Not Resolved]
  - Self esteem decreased [Unknown]
  - Weight increased [Unknown]
  - Dermatitis atopic [Not Recovered/Not Resolved]
  - Diarrhoea [Unknown]
  - Urticaria [Unknown]
  - Pain [Unknown]
  - Stress [Unknown]
  - Breast mass [Unknown]
  - Breast inflammation [Unknown]
  - Breast swelling [Unknown]

NARRATIVE: CASE EVENT DATE: 20220501
